FAERS Safety Report 23414775 (Version 1)
Quarter: 2024Q1

REPORT INFORMATION
  Report Type: Other
  Country: US (occurrence: None)
  Receive Date: 20240118
  Receipt Date: 20240118
  Transmission Date: 20240409
  Serious: Yes (Hospitalization)
  Sender: FDA-Public Use
  Company Number: US-ROCHE-3490493

PATIENT
  Age: 56 Year
  Sex: Female

DRUGS (1)
  1. OCREVUS [Suspect]
     Active Substance: OCRELIZUMAB
     Indication: Product used for unknown indication
     Route: 065

REACTIONS (4)
  - Infection [Recovered/Resolved]
  - Pneumonia [Unknown]
  - Urinary tract infection [Unknown]
  - Mental status changes [Unknown]

NARRATIVE: CASE EVENT DATE: 20230925
